FAERS Safety Report 6825509-2 (Version None)
Quarter: 2010Q3

REPORT INFORMATION
  Report Type: 
  Country: None (occurrence: None)
  Receive Date: 20100708
  Receipt Date: 20081202
  Transmission Date: 20110219
  Serious: No
  Sender: FDA-Public Use
  Company Number: US-PFIZER INC-2006114309

PATIENT
  Sex: Female
  Weight: 63.5 kg

DRUGS (5)
  1. CHANTIX [Suspect]
     Indication: EX-TOBACCO USER
     Route: 048
     Dates: start: 20060803, end: 20060804
  2. BUSPAR [Concomitant]
     Indication: SLEEP DISORDER
  3. ACTIVELLA [Concomitant]
  4. CYMBALTA [Concomitant]
  5. ULTRAM [Concomitant]

REACTIONS (2)
  - EMOTIONAL DISORDER [None]
  - FEELING ABNORMAL [None]
